FAERS Safety Report 14700139 (Version 3)
Quarter: 2018Q3

REPORT INFORMATION
  Report Type: Spontaneous
  Country: BR (occurrence: BR)
  Receive Date: 20180330
  Receipt Date: 20180712
  Transmission Date: 20181010
  Serious: Yes (Other)
  Sender: FDA-Public Use
  Company Number: BR-SA-2018SA084672

PATIENT
  Age: 33 Year
  Sex: Male
  Weight: 78.6 kg

DRUGS (2)
  1. LANTUS [Suspect]
     Active Substance: INSULIN GLARGINE
     Indication: TYPE 1 DIABETES MELLITUS
     Dosage: UNK UNK,BID
     Route: 058
     Dates: start: 2017, end: 20170307
  2. AMOXICILLIN/CLAVULANIC ACID [Concomitant]
     Active Substance: AMOXICILLIN\CLAVULANIC ACID
     Dosage: 1 DF,BID
     Route: 065
     Dates: start: 20180309, end: 20180326

REACTIONS (11)
  - Diabetic complication [Unknown]
  - Nephropathy [Not Recovered/Not Resolved]
  - Hypertension [Not Recovered/Not Resolved]
  - Product use issue [Unknown]
  - Neuropathy peripheral [Not Recovered/Not Resolved]
  - Retinal disorder [Unknown]
  - Carpal tunnel syndrome [Not Recovered/Not Resolved]
  - Erysipelas [Recovered/Resolved]
  - Hyperlipidaemia [Not Recovered/Not Resolved]
  - Microalbuminuria [Not Recovered/Not Resolved]
  - Off label use [Unknown]

NARRATIVE: CASE EVENT DATE: 2017
